FAERS Safety Report 5747276-6 (Version None)
Quarter: 2008Q2

REPORT INFORMATION
  Report Type: 
  Country: None (occurrence: None)
  Receive Date: 20080523
  Receipt Date: 20080515
  Transmission Date: 20081010
  Serious: Yes (Other)
  Sender: FDA-Public Use
  Company Number: GB-RANBAXY-2008RR-15227

PATIENT

DRUGS (2)
  1. ACETAMINOPHEN [Suspect]
     Indication: VARICELLA
  2. LORATADINE 10MG TABLETS [Suspect]
     Indication: VARICELLA

REACTIONS (1)
  - ACUTE GENERALISED EXANTHEMATOUS PUSTULOSIS [None]
